FAERS Safety Report 11926303 (Version 1)
Quarter: 2016Q1

REPORT INFORMATION
  Report Type: Report from Study
  Country: JP (occurrence: JP)
  Receive Date: 20160119
  Receipt Date: 20160119
  Transmission Date: 20160526
  Serious: Yes (Other)
  Sender: FDA-Public Use
  Company Number: JP-BRISTOL-MYERS SQUIBB COMPANY-15059900

PATIENT
  Age: 29 Year
  Sex: Female

DRUGS (8)
  1. ENTECAVIR. [Suspect]
     Active Substance: ENTECAVIR
     Indication: CHRONIC HEPATITIS
     Dosage: .5 MG, QD
     Route: 048
     Dates: start: 20100406
  2. PURSENNID [Suspect]
     Active Substance: SENNOSIDES A AND B
     Indication: PROPHYLAXIS
     Dosage: 24 MG, QD
     Route: 048
     Dates: start: 20101001, end: 20101006
  3. FERROMIA [Concomitant]
     Active Substance: FERROUS CITRATE
     Indication: ANAEMIA PROPHYLAXIS
     Dosage: 100 MG, QD
     Route: 048
     Dates: start: 20101006, end: 20101020
  4. MAGMITT [Suspect]
     Active Substance: MAGNESIUM OXIDE
     Indication: PROPHYLAXIS
     Dosage: 990 MG, QD
     Route: 048
     Dates: start: 20100301, end: 20100401
  5. UTEMERIN [Suspect]
     Active Substance: RITODRINE
     Indication: PROPHYLAXIS
     Dosage: 15 MG, QD
     Route: 048
     Dates: start: 20100810, end: 20100917
  6. CABASER [Suspect]
     Active Substance: CABERGOLINE
     Indication: PRODUCT USED FOR UNKNOWN INDICATION
     Dosage: 1 MG, QD
     Route: 048
     Dates: start: 20101001, end: 20101201
  7. METHERGINE [Suspect]
     Active Substance: METHYLERGONOVINE MALEATE
     Indication: PROPHYLAXIS
     Dosage: UNK UNK, QD
     Route: 048
     Dates: start: 20101001, end: 20101006
  8. POSTERISAN FORTE [Suspect]
     Active Substance: LIDOCAINE
     Indication: PROPHYLAXIS
     Dosage: 1 G, QD
     Route: 050
     Dates: start: 20101001

REACTIONS (4)
  - Live birth [Unknown]
  - Maternal exposure during pregnancy [Recovered/Resolved]
  - Threatened labour [Recovered/Resolved]
  - Herpes zoster [Recovering/Resolving]

NARRATIVE: CASE EVENT DATE: 20100810
